FAERS Safety Report 25594787 (Version 1)
Quarter: 2025Q3

REPORT INFORMATION
  Report Type: Spontaneous
  Country: US (occurrence: US)
  Receive Date: 20250723
  Receipt Date: 20250723
  Transmission Date: 20251020
  Serious: No
  Sender: AMGEN
  Company Number: US-AMGEN-USASP2025143353

PATIENT
  Sex: Female

DRUGS (6)
  1. REPATHA [Suspect]
     Active Substance: EVOLOCUMAB
     Indication: Product used for unknown indication
     Dosage: 140 MILLIGRAM, Q2WK
     Route: 058
     Dates: start: 202502
  2. CORTISONE [Concomitant]
     Active Substance: CORTISONE
     Indication: Product used for unknown indication
     Route: 058
  3. CORTISONE [Concomitant]
     Active Substance: CORTISONE
     Route: 058
  4. CORTISONE [Concomitant]
     Active Substance: CORTISONE
     Route: 058
  5. NICKEL [Concomitant]
     Active Substance: NICKEL
     Indication: Product used for unknown indication
     Route: 058
  6. NICKEL [Concomitant]
     Active Substance: NICKEL
     Route: 058

REACTIONS (1)
  - Eczema [Unknown]
